FAERS Safety Report 9009176 (Version 1)
Quarter: 2013Q1

REPORT INFORMATION
  Report Type: Report from Study
  Country: AR (occurrence: AR)
  Receive Date: 20130111
  Receipt Date: 20130111
  Transmission Date: 20140127
  Serious: Yes (Hospitalization, Other)
  Sender: FDA-Public Use
  Company Number: AR-ABBOTT-13P-007-1032874-00

PATIENT
  Sex: Female

DRUGS (1)
  1. HUMIRA [Suspect]
     Indication: RHEUMATOID ARTHRITIS
     Route: 058
     Dates: start: 20120701, end: 20120701

REACTIONS (8)
  - Limb crushing injury [Recovering/Resolving]
  - Arthritis bacterial [Recovering/Resolving]
  - Arthritis bacterial [Recovering/Resolving]
  - Joint swelling [Recovering/Resolving]
  - Pyrexia [Recovering/Resolving]
  - Arthritis bacterial [Recovering/Resolving]
  - Joint stiffness [Recovering/Resolving]
  - Synovial cyst [Unknown]
